FAERS Safety Report 4447103-3 (Version None)
Quarter: 2004Q3

REPORT INFORMATION
  Report Type: 
  Country: None (occurrence: None)
  Receive Date: 20040813
  Receipt Date: 20040416
  Transmission Date: 20050211
  Serious: No
  Sender: FDA-Public Use
  Company Number: S04-USA-02949-01

PATIENT
  Age: 85 Year
  Sex: Male

DRUGS (10)
  1. NAMENDA [Suspect]
     Indication: DEMENTIA ALZHEIMER'S TYPE
     Dosage: 10 MG QD; PO
     Route: 048
     Dates: start: 20040128, end: 20040203
  2. NAMENDA [Suspect]
     Indication: DEMENTIA ALZHEIMER'S TYPE
     Dosage: 5 MG QD; PO
     Route: 048
     Dates: start: 20040121, end: 20040127
  3. TYLENOL [Concomitant]
  4. HYDROCODONE [Concomitant]
  5. DEPAKOTE [Concomitant]
  6. FLOMAX [Concomitant]
  7. KLOR-CON [Concomitant]
  8. FLEET RECTAROID ENEMA [Concomitant]
  9. BISAC-EVAC [Concomitant]
  10. MILK OF MAGNESIA TAB [Concomitant]

REACTIONS (3)
  - AGGRESSION [None]
  - LETHARGY [None]
  - OEDEMA [None]
